FAERS Safety Report 11031073 (Version 1)
Quarter: 2015Q2

REPORT INFORMATION
  Report Type: Spontaneous
  Country: US (occurrence: US)
  Receive Date: 20150415
  Receipt Date: 20150415
  Transmission Date: 20150821
  Serious: No
  Sender: FDA-Public Use
  Company Number: US-ASTRAZENECA-2015SE04270

PATIENT
  Sex: Male

DRUGS (2)
  1. SPRAY [Interacting]
     Active Substance: UNSPECIFIED INGREDIENT
     Dosage: UNKNOWN
     Route: 045
  2. PRILOSEC OTC [Suspect]
     Active Substance: OMEPRAZOLE MAGNESIUM
     Dosage: UNK DOSE UNK FREQ, FOR 13 DAYS
     Route: 048

REACTIONS (2)
  - Malaise [Unknown]
  - Drug interaction [Unknown]
